FAERS Safety Report 6435681-4 (Version None)
Quarter: 2009Q4

REPORT INFORMATION
  Report Type: 
  Country: None (occurrence: None)
  Receive Date: 20091111
  Receipt Date: 20091030
  Transmission Date: 20100525
  Serious: Yes (Other)
  Sender: FDA-Public Use
  Company Number: PHHY2009BR47633

PATIENT
  Age: 55 Year
  Sex: Female

DRUGS (4)
  1. ESTRAGEST TTS [Suspect]
     Dosage: UNK
     Dates: start: 20091019
  2. XENICAL [Concomitant]
  3. LIPITOR [Concomitant]
  4. VITAMIN D [Concomitant]
     Indication: MIGRAINE

REACTIONS (2)
  - MIGRAINE [None]
  - VAGINAL HAEMORRHAGE [None]
